FAERS Safety Report 14089815 (Version 2)
Quarter: 2019Q3

REPORT INFORMATION
  Report Type: Report from Study
  Country: US (occurrence: US)
  Receive Date: 20171014
  Receipt Date: 20190809
  Transmission Date: 20191004
  Serious: No
  Sender: FDA-Public Use
  Company Number: US-SA-2017SA170615

PATIENT
  Age: 51 Year
  Sex: Female

DRUGS (5)
  1. FEXOFENADINE [Concomitant]
     Active Substance: FEXOFENADINE HYDROCHLORIDE
  2. MOTRIN [Concomitant]
     Active Substance: IBUPROFEN
  3. TERIFLUNOMIDE. [Suspect]
     Active Substance: TERIFLUNOMIDE
     Indication: MULTIPLE SCLEROSIS
     Dosage: 14 MG, QD
     Route: 048
     Dates: start: 20160418
  4. LOSARTAN. [Concomitant]
     Active Substance: LOSARTAN
  5. LISINOPRIL. [Suspect]
     Active Substance: LISINOPRIL
     Dosage: UNK UNK,UNK
     Route: 065

REACTIONS (3)
  - Visual impairment [Unknown]
  - Blood pressure increased [Unknown]
  - Cough [Unknown]
